FAERS Safety Report 12340567 (Version 5)
Quarter: 2016Q4

REPORT INFORMATION
  Report Type: Spontaneous
  Country: US (occurrence: US)
  Receive Date: 20160506
  Receipt Date: 20161222
  Transmission Date: 20170207
  Serious: Yes (Other)
  Sender: FDA-Public Use
  Company Number: US-BAYER-2016-080555

PATIENT
  Age: 51 Year
  Sex: Female

DRUGS (2)
  1. MYDRIACYL [Concomitant]
     Active Substance: TROPICAMIDE
  2. AVELOX [Suspect]
     Active Substance: MOXIFLOXACIN HYDROCHLORIDE
     Indication: BRONCHITIS
     Dosage: UNK
     Dates: start: 20150316

REACTIONS (18)
  - Iris transillumination defect [None]
  - Eye inflammation [None]
  - Pain [None]
  - Blindness [None]
  - Eye pain [None]
  - Iridocyclitis [None]
  - Photophobia [None]
  - Cataract [None]
  - Ocular discomfort [None]
  - Pigment dispersion syndrome [None]
  - Headache [None]
  - Vision blurred [None]
  - Headache [None]
  - Uveitis [None]
  - Benign neoplasm of choroid [None]
  - Glaucoma [None]
  - Ocular hyperaemia [None]
  - Erythema [None]

NARRATIVE: CASE EVENT DATE: 20150326
